FAERS Safety Report 7118722-0 (Version None)
Quarter: 2010Q4

REPORT INFORMATION
  Report Type: 
  Country: None (occurrence: None)
  Receive Date: 20101123
  Receipt Date: 20101108
  Transmission Date: 20110411
  Serious: No
  Sender: FDA-Public Use
  Company Number: US-PFIZER INC-2010148398

PATIENT
  Age: 85 Year
  Sex: Female

DRUGS (1)
  1. ADVIL [Suspect]

REACTIONS (2)
  - BLOOD SODIUM DECREASED [None]
  - FLATULENCE [None]
